FAERS Safety Report 25428615 (Version 2)
Quarter: 2025Q2

REPORT INFORMATION
  Report Type: Spontaneous
  Country: FR (occurrence: FR)
  Receive Date: 20250612
  Receipt Date: 20250623
  Transmission Date: 20250717
  Serious: Yes (Other)
  Sender: MERCK SHARP & DOHME LLC
  Company Number: FR-009507513-2294755

PATIENT
  Age: 72 Year
  Sex: Female

DRUGS (1)
  1. PEMBROLIZUMAB [Suspect]
     Active Substance: PEMBROLIZUMAB
     Indication: Metastatic malignant melanoma
     Dosage: Q3W
     Route: 065
     Dates: start: 202306, end: 202310

REACTIONS (2)
  - Eosinophilic fasciitis [Recovering/Resolving]
  - Obstructive airways disorder [Recovering/Resolving]

NARRATIVE: CASE EVENT DATE: 20231001
